FAERS Safety Report 9988576 (Version 1)
Quarter: 2014Q1

REPORT INFORMATION
  Report Type: Spontaneous
  Country: AR (occurrence: AR)
  Receive Date: 20140310
  Receipt Date: 20140310
  Transmission Date: 20141002
  Serious: Yes (Hospitalization, Disabling, Other)
  Sender: FDA-Public Use
  Company Number: AR-ROCHE-1361616

PATIENT
  Sex: Female

DRUGS (1)
  1. XOLAIR [Suspect]
     Indication: ASTHMA
     Route: 058
     Dates: start: 2010, end: 201212

REACTIONS (4)
  - Skin ulcer [Recovering/Resolving]
  - Urinary tract infection [Recovering/Resolving]
  - Viral infection [Unknown]
  - Abasia [Recovering/Resolving]
